FAERS Safety Report 23146967 (Version 1)
Quarter: 2023Q4

REPORT INFORMATION
  Report Type: Spontaneous
  Country: BE (occurrence: BE)
  Receive Date: 20231106
  Receipt Date: 20231106
  Transmission Date: 20240110
  Serious: Yes (Death)
  Sender: FDA-Public Use
  Company Number: BE-NOVITIUMPHARMA-2023BENVP01914

PATIENT
  Age: 72 Year
  Sex: Female

DRUGS (2)
  1. CARBAMAZEPINE [Suspect]
     Active Substance: CARBAMAZEPINE
     Indication: Epilepsy
  2. PHENYTOIN [Concomitant]
     Active Substance: PHENYTOIN
     Indication: Epilepsy

REACTIONS (1)
  - Drug ineffective [Fatal]
